FAERS Safety Report 12808543 (Version 1)
Quarter: 2016Q4

REPORT INFORMATION
  Report Type: Spontaneous
  Country: US (occurrence: US)
  Receive Date: 20161004
  Receipt Date: 20161004
  Transmission Date: 20170207
  Serious: Yes (Other)
  Sender: FDA-Public Use
  Company Number: US-009507513-1609USA014753

PATIENT

DRUGS (1)
  1. DIFICID [Suspect]
     Active Substance: FIDAXOMICIN
     Route: 048

REACTIONS (4)
  - Probiotic therapy [Unknown]
  - Clostridium difficile colitis [Not Recovered/Not Resolved]
  - Adverse event [Unknown]
  - Drug ineffective [Unknown]

NARRATIVE: CASE EVENT DATE: 2014
